FAERS Safety Report 5672873-6 (Version None)
Quarter: 2008Q1

REPORT INFORMATION
  Report Type: 
  Country: None (occurrence: None)
  Receive Date: 20080319
  Receipt Date: 20080103
  Transmission Date: 20080703
  Serious: No
  Sender: FDA-Public Use
  Company Number: US-ASTRAZENECA-2007UW24630

PATIENT
  Age: 68 Year
  Sex: Male
  Weight: 82.6 kg

DRUGS (2)
  1. SYMBICORT [Suspect]
     Indication: ASTHMA
     Dosage: 80/4.5 UG 0NE PUFF BID
     Route: 055
  2. ALBUTEROL [Concomitant]

REACTIONS (3)
  - NASAL CONGESTION [None]
  - SOMNOLENCE [None]
  - THROAT IRRITATION [None]
